FAERS Safety Report 5795969-7 (Version None)
Quarter: 2008Q2

REPORT INFORMATION
  Report Type: 
  Country: None (occurrence: None)
  Receive Date: 20080626
  Receipt Date: 20080620
  Transmission Date: 20081010
  Serious: Yes (Other)
  Sender: FDA-Public Use
  Company Number: 2008SP012302

PATIENT
  Age: 47 Year
  Sex: Male

DRUGS (2)
  1. PEG-INTRON [Suspect]
     Indication: HEPATITIS C
     Dates: start: 20080314
  2. REBETOL [Suspect]
     Indication: HEPATITIS C
     Dosage: PO
     Route: 048
     Dates: start: 20080314

REACTIONS (11)
  - BLOOD PRESSURE DECREASED [None]
  - CYANOSIS [None]
  - DEHYDRATION [None]
  - DIZZINESS [None]
  - FALL [None]
  - HAEMATOCRIT DECREASED [None]
  - HAEMOGLOBIN DECREASED [None]
  - HYPOVOLAEMIA [None]
  - PLATELET COUNT DECREASED [None]
  - SYNCOPE [None]
  - WHITE BLOOD CELL COUNT DECREASED [None]
